FAERS Safety Report 13277069 (Version 1)
Quarter: 2017Q1

REPORT INFORMATION
  Report Type: Report from Study
  Country: GB (occurrence: GB)
  Receive Date: 20170228
  Receipt Date: 20170228
  Transmission Date: 20170428
  Serious: Yes (Other)
  Sender: FDA-Public Use
  Company Number: GB-ALIMERA SCIENCES LIMITED-GB-IL-2017-003318

PATIENT

DRUGS (8)
  1. OPTIVE FUSION EYE DROPS [Concomitant]
     Indication: DRY EYE
     Dosage: BOTH EYES
     Dates: start: 20160712
  2. ILUVIEN [Suspect]
     Active Substance: FLUOCINOLONE ACETONIDE
     Indication: DIABETIC RETINAL OEDEMA
     Dosage: 0.25 LEFT EYE
     Route: 031
     Dates: start: 20140703
  3. GANFORT [Concomitant]
     Active Substance: BIMATOPROST\TIMOLOL
     Indication: GLAUCOMA
     Dosage: BOTH EYES
  4. TIMOLOL TIOPEX  EYE GEL [Concomitant]
     Indication: INTRAOCULAR PRESSURE INCREASED
     Dosage: LEFT EYE
     Dates: start: 20160510
  5. SIMBRINZA EYE DROPS [Concomitant]
     Indication: GLAUCOMA
     Dosage: LEFT EYE
     Dates: start: 20160301
  6. VITAMIN A EYE GEL [Concomitant]
     Indication: DRY EYE
     Dosage: BOTH EYES
     Dates: start: 20160712
  7. LOTEPREDNOLETABONATE EYE DROPS [Concomitant]
     Indication: POSTOPERATIVE CARE
     Dosage: LEFT EYE
     Dates: start: 20161019
  8. DIAMOX SEQUELS [Concomitant]
     Active Substance: ACETAZOLAMIDE
     Indication: INTRAOCULAR PRESSURE INCREASED
     Dosage: 250 MG, LEFT EYE
     Dates: start: 20151208

REACTIONS (2)
  - Ophthalmic fluid drainage [Recovered/Resolved]
  - Choroidal effusion [Recovered/Resolved]

NARRATIVE: CASE EVENT DATE: 20161109
